FAERS Safety Report 19286253 (Version 1)
Quarter: 2021Q2

REPORT INFORMATION
  Report Type: Other
  Country: GB (occurrence: GB)
  Receive Date: 20210521
  Receipt Date: 20210521
  Transmission Date: 20210717
  Serious: No
  Sender: FDA-Public Use
  Company Number: GB-GW PHARMA-202105GBGW02396

PATIENT

DRUGS (5)
  1. MELATONIN [Concomitant]
     Active Substance: MELATONIN
     Indication: ILL-DEFINED DISORDER
     Dosage: UNK
     Route: 065
  2. EPIDYOLEX [Suspect]
     Active Substance: CANNABIDIOL
     Indication: LENNOX-GASTAUT SYNDROME
     Dosage: 340 MILLIGRAM, BID
     Route: 048
     Dates: start: 202005
  3. SODIUM VALPROATE [Interacting]
     Active Substance: VALPROATE SODIUM
     Indication: LENNOX-GASTAUT SYNDROME
     Dosage: 700 MILLIGRAM, BID
     Route: 048
     Dates: start: 2007
  4. CLOBAZAM. [Concomitant]
     Active Substance: CLOBAZAM
     Indication: ILL-DEFINED DISORDER
     Dosage: UNK
     Route: 065
  5. EPIDYOLEX [Interacting]
     Active Substance: CANNABIDIOL
     Dosage: UNK, DOSE DECREASED
     Route: 048

REACTIONS (3)
  - Alopecia [Recovered/Resolved]
  - Drug interaction [Unknown]
  - Decreased appetite [Unknown]

NARRATIVE: CASE EVENT DATE: 202010
